FAERS Safety Report 6230475-7 (Version None)
Quarter: 2009Q2

REPORT INFORMATION
  Report Type: 
  Country: None (occurrence: None)
  Receive Date: 20090611
  Receipt Date: 20090527
  Transmission Date: 20091009
  Serious: Yes (Other)
  Sender: FDA-Public Use
  Company Number: 2009US001397

PATIENT
  Age: 6 Year
  Sex: Female

DRUGS (2)
  1. FK506 - OINTMENT (TACROLIMUS OITMENT) [Suspect]
     Indication: DERMATITIS ATOPIC
     Dosage: 0.03 % D, TOPICAL
     Route: 061
     Dates: start: 20070726
  2. PEANUTS() [Suspect]
     Dates: start: 20090509

REACTIONS (3)
  - ACCIDENTAL EXPOSURE [None]
  - ANAPHYLACTIC REACTION [None]
  - FOOD ALLERGY [None]
